FAERS Safety Report 12081756 (Version 2)
Quarter: 2016Q1

REPORT INFORMATION
  Report Type: Spontaneous
  Country: VE (occurrence: VE)
  Receive Date: 20160216
  Receipt Date: 20160225
  Transmission Date: 20160526
  Serious: Yes (Life-Threatening)
  Sender: FDA-Public Use
  Company Number: PHHY2016VE019927

PATIENT
  Sex: Female

DRUGS (6)
  1. CLONAC//DICLOFENAC SODIUM [Concomitant]
     Indication: RELAXATION THERAPY
     Route: 065
  2. FORADIL [Suspect]
     Active Substance: FORMOTEROL FUMARATE
     Indication: ASTHMA
     Dosage: 400 UG, QD
     Route: 055
  3. AIRON [Concomitant]
     Indication: BRONCHOSPASM
     Dosage: 10 MG, QD
     Route: 065
  4. RIVOTRIL [Concomitant]
     Active Substance: CLONAZEPAM
     Indication: PRODUCT USED FOR UNKNOWN INDICATION
     Route: 065
  5. MIFLONIDE [Suspect]
     Active Substance: BUDESONIDE
     Indication: ASTHMA
     Dosage: 24 UG, QD
     Route: 055
  6. IPRAN [Concomitant]
     Indication: ANTIDEPRESSANT THERAPY
     Dosage: 10 MG, QD
     Route: 065

REACTIONS (4)
  - Dyspnoea [Unknown]
  - Fatigue [Unknown]
  - Respiratory arrest [Unknown]
  - Choking [Unknown]
